FAERS Safety Report 5124932-4 (Version None)
Quarter: 2006Q4

REPORT INFORMATION
  Report Type: 
  Country: None (occurrence: None)
  Receive Date: 20060822
  Receipt Date: 20060607
  Transmission Date: 20070319
  Serious: No
  Sender: FDA-Public Use
  Company Number: PHEH2006US07505

PATIENT
  Age: 85 Year
  Sex: Female

DRUGS (3)
  1. ENABLEX [Suspect]
     Indication: HYPERTONIC BLADDER
     Dosage: 7.5 MG ,QD,
     Dates: start: 20060531
  2. AMBIEN [Suspect]
     Indication: HYPERTONIC BLADDER
  3. DARVOCET-N 100 [Suspect]
     Indication: DRUG USE FOR UNKNOWN INDICATION

REACTIONS (3)
  - FATIGUE [None]
  - HYPERSOMNIA [None]
  - POLLAKIURIA [None]
